FAERS Safety Report 19171115 (Version 3)
Quarter: 2021Q3

REPORT INFORMATION
  Report Type: Report from Study
  Country: CA (occurrence: CA)
  Receive Date: 20210422
  Receipt Date: 20210716
  Transmission Date: 20211014
  Serious: Yes (Other)
  Sender: FDA-Public Use
  Company Number: CA-JNJFOC-20210433713

PATIENT
  Age: 17 Year
  Sex: Male
  Weight: 64.5 kg

DRUGS (4)
  1. REMICADE [Suspect]
     Active Substance: INFLIXIMAB
     Dosage: ON 09?MAY?2021, THE PATIENT HAD RECEIVED 4TH INFLIXIMAB INFUSION AT DOSE OF 700 MG.
     Route: 042
     Dates: start: 2021
  2. IRON [Suspect]
     Active Substance: IRON
     Indication: ANAEMIA
     Route: 042
     Dates: start: 20210406
  3. PREDNISONE. [Concomitant]
     Active Substance: PREDNISONE
     Indication: PRODUCT USED FOR UNKNOWN INDICATION
     Route: 065
  4. REMICADE [Suspect]
     Active Substance: INFLIXIMAB
     Indication: CROHN^S DISEASE
     Route: 042
     Dates: start: 20210305, end: 2021

REACTIONS (8)
  - Malabsorption [Unknown]
  - Crohn^s disease [Unknown]
  - Anaemia [Unknown]
  - Drug level decreased [Unknown]
  - Off label use [Unknown]
  - Product use issue [Unknown]
  - Chills [Recovered/Resolved]
  - Headache [Unknown]

NARRATIVE: CASE EVENT DATE: 20210305
